FAERS Safety Report 11189895 (Version 1)
Quarter: 2015Q2

REPORT INFORMATION
  Report Type: Spontaneous
  Country: US (occurrence: None)
  Receive Date: 20150612
  Receipt Date: 20150612
  Transmission Date: 20150821
  Serious: Yes (Other)
  Sender: FDA-Public Use
  Company Number: None

PATIENT
  Age: 32 Year
  Sex: Female
  Weight: 65.77 kg

DRUGS (1)
  1. AMBIEN [Suspect]
     Active Substance: ZOLPIDEM TARTRATE
     Dosage: 1PILL BEDTIME AT BEDTIME TAKEN BY MOUTH
     Route: 048

REACTIONS (3)
  - Abnormal sleep-related event [None]
  - Accident [None]
  - Altered state of consciousness [None]

NARRATIVE: CASE EVENT DATE: 20130607
